FAERS Safety Report 4273844-7 (Version None)
Quarter: 2004Q1

REPORT INFORMATION
  Report Type: 
  Country: None (occurrence: None)
  Receive Date: 20040115
  Receipt Date: 20031231
  Transmission Date: 20041129
  Serious: Yes (Hospitalization, Other)
  Sender: FDA-Public Use
  Company Number: USA030946335

PATIENT
  Age: 62 Year
  Sex: Female
  Weight: 50 kg

DRUGS (5)
  1. FORTEO [Suspect]
     Indication: OSTEOPOROSIS
     Dates: start: 20030401, end: 20030601
  2. SYNTHROID [Concomitant]
  3. PAXIL [Concomitant]
  4. CELEBREX [Concomitant]
  5. PREVACID [Concomitant]

REACTIONS (1)
  - LARGE CELL LUNG CANCER STAGE II [None]
